FAERS Safety Report 10399865 (Version 2)
Quarter: 2014Q4

REPORT INFORMATION
  Report Type: Report from Study
  Country: US (occurrence: US)
  Receive Date: 20140821
  Receipt Date: 20141110
  Transmission Date: 20150528
  Serious: Yes (Hospitalization, Other)
  Sender: FDA-Public Use
  Company Number: US-GLAXOSMITHKLINE-A1084789A

PATIENT
  Age: 56 Year
  Sex: Male
  Weight: 81.8 kg

DRUGS (15)
  1. PAZOPANIB [Suspect]
     Active Substance: PAZOPANIB
     Indication: LEIOMYOSARCOMA
     Route: 048
     Dates: start: 20140117, end: 20140630
  2. BUPROPION [Concomitant]
     Active Substance: BUPROPION
  3. IPRATROPIUM BROMIDE + SALBUTAMOL [Concomitant]
     Active Substance: ALBUTEROL\IPRATROPIUM BROMIDE
  4. LIDOCAINE. [Concomitant]
     Active Substance: LIDOCAINE
     Route: 062
  5. LOSARTAN [Concomitant]
     Active Substance: LOSARTAN
  6. FENTANYL TRANSDERMAL SYSTEM [Concomitant]
     Active Substance: FENTANYL
     Dosage: UNK
  7. LORAZEPAM. [Concomitant]
     Active Substance: LORAZEPAM
  8. ONDANSETRON [Concomitant]
     Active Substance: ONDANSETRON
     Dosage: 4 MG, UNK
  9. GEMCITABINE [Suspect]
     Active Substance: GEMCITABINE\GEMCITABINE HYDROCHLORIDE
     Dosage: 900 MG/M2, UNK
     Dates: start: 20140617, end: 20140715
  10. INSULIN ASPART [Concomitant]
     Active Substance: INSULIN ASPART
  11. INSULIN DETEMIR [Concomitant]
     Active Substance: INSULIN DETEMIR
  12. GEMCITABINE [Suspect]
     Active Substance: GEMCITABINE\GEMCITABINE HYDROCHLORIDE
     Indication: LEIOMYOSARCOMA
     Dosage: 1000 MG/M2, UNK
     Route: 042
     Dates: start: 20140117, end: 20140523
  13. DOCETAXEL. [Suspect]
     Active Substance: DOCETAXEL
     Indication: LEIOMYOSARCOMA
     Dosage: 100 MG/M2, UNK
     Route: 042
     Dates: start: 20140624, end: 20140715
  14. HYDROMORPHONE [Concomitant]
     Active Substance: HYDROMORPHONE
  15. PROCHLORPERAZINE MALEATE. [Concomitant]
     Active Substance: PROCHLORPERAZINE MALEATE
     Dosage: 10 MG, UNK

REACTIONS (2)
  - Lung infection [Unknown]
  - Leukocytosis [Unknown]

NARRATIVE: CASE EVENT DATE: 20140723
